FAERS Safety Report 5549050-2 (Version None)
Quarter: 2007Q4

REPORT INFORMATION
  Report Type: 
  Country: None (occurrence: None)
  Receive Date: 20071210
  Receipt Date: 20071204
  Transmission Date: 20080405
  Serious: Yes (Death, Other)
  Sender: FDA-Public Use
  Company Number: 163-21880-07040779

PATIENT
  Age: 85 Year
  Sex: Male

DRUGS (4)
  1. REVLIMID [Suspect]
     Indication: MYELODYSPLASTIC SYNDROME
     Dosage: 10 MG, 1 IN 1 D, ORAL
     Route: 048
     Dates: start: 20070112, end: 20070301
  2. NADOLOL [Concomitant]
  3. ASA EC(ACETYLSALICYLIC ACID) [Concomitant]
  4. LIPITOR [Concomitant]

REACTIONS (2)
  - ACUTE LEUKAEMIA [None]
  - DRUG INEFFECTIVE [None]
